FAERS Safety Report 6256906-4 (Version None)
Quarter: 2009Q3

REPORT INFORMATION
  Report Type: 
  Country: None (occurrence: None)
  Receive Date: 20090706
  Receipt Date: 20090521
  Transmission Date: 20100115
  Serious: No
  Sender: FDA-Public Use
  Company Number: US-BAYER-200911618BCC

PATIENT
  Age: 40 Year
  Sex: Female
  Weight: 50 kg

DRUGS (4)
  1. MIDOL [Suspect]
     Indication: DYSMENORRHOEA
     Dosage: UNIT DOSE: 220 MG
     Route: 048
     Dates: start: 20080101, end: 20080101
  2. MIDOL [Suspect]
     Dosage: UNIT DOSE: 220 MG
     Route: 048
     Dates: start: 20080101, end: 20080101
  3. MIDOL [Suspect]
     Indication: DYSMENORRHOEA
     Dosage: TOOK 8-10 GELCAPS DAILY
     Route: 048
     Dates: start: 20080101, end: 20080101
  4. MIDOL HEADACHE [Suspect]
     Indication: DYSMENORRHOEA
     Dosage: 10 TO 15 MIDOL HEADACHE EVERY 4 TO 6 HOURS
     Route: 048

REACTIONS (2)
  - DYSMENORRHOEA [None]
  - DYSPEPSIA [None]
